FAERS Safety Report 23516906 (Version 1)
Quarter: 2024Q1

REPORT INFORMATION
  Report Type: Spontaneous
  Country: CN (occurrence: CN)
  Receive Date: 20240213
  Receipt Date: 20240213
  Transmission Date: 20240409
  Serious: No
  Sender: FDA-Public Use
  Company Number: CN-ALKEM LABORATORIES LIMITED-CN-ALKEM-2023-14304

PATIENT
  Age: 38 Year
  Sex: Female

DRUGS (7)
  1. LINEZOLID [Suspect]
     Active Substance: LINEZOLID
     Indication: Brain abscess
     Dosage: 0.6 GRAM, BID (Q12 HOURS) INJECTION
     Route: 065
  2. LINEZOLID [Suspect]
     Active Substance: LINEZOLID
     Indication: Infection
     Dosage: 0.6 GRAM, BID (Q12 HOURS) TABLET
     Route: 048
  3. MEROPENEM [Suspect]
     Active Substance: MEROPENEM
     Indication: Brain abscess
     Dosage: 2 GRAM, TID (Q 8 HOURS)
     Route: 065
  4. CEFTRIAXONE [Suspect]
     Active Substance: CEFTRIAXONE\CEFTRIAXONE SODIUM
     Indication: Antibiotic therapy
     Dosage: 2 GRAM (INJECTION)
     Route: 065
  5. DEXAMETHASONE [Suspect]
     Active Substance: DEXAMETHASONE
     Indication: Brain oedema
     Dosage: 5 MILLIGRAM
     Route: 065
  6. MANNITOL [Suspect]
     Active Substance: MANNITOL
     Indication: Brain oedema
     Dosage: 150 MILLILITER, TID
     Route: 065
  7. ORNIDAZOLE [Suspect]
     Active Substance: ORNIDAZOLE
     Indication: Infection
     Dosage: 0.5 GRAM, BID (DRIP)
     Route: 042

REACTIONS (1)
  - Exposure during pregnancy [Unknown]
